FAERS Safety Report 5298170-9 (Version None)
Quarter: 2007Q1

REPORT INFORMATION
  Report Type: 
  Country: None (occurrence: None)
  Receive Date: 20070205
  Receipt Date: 20060213
  Transmission Date: 20070707
  Serious: Yes (Hospitalization)
  Sender: FDA-Public Use
  Company Number: US200602000268

PATIENT
  Age: 76 Year
  Sex: Female

DRUGS (2)
  1. EVISTA [Suspect]
     Indication: OSTEOPENIA
     Dosage: ORAL
     Route: 048
     Dates: start: 20040101
  2. ANTIHYPERTENSIVES [Concomitant]

REACTIONS (2)
  - DYSPNOEA [None]
  - PULMONARY EMBOLISM [None]
